FAERS Safety Report 5936832-8 (Version None)
Quarter: 2008Q4

REPORT INFORMATION
  Report Type: 
  Country: None (occurrence: None)
  Receive Date: 20081029
  Receipt Date: 20081016
  Transmission Date: 20090506
  Serious: Yes (Other)
  Sender: FDA-Public Use
  Company Number: 2008-185402-NL

PATIENT
  Age: 21 Year
  Sex: Female
  Weight: 68 kg

DRUGS (1)
  1. NUVARING [Suspect]
     Indication: CONTRACEPTION
     Dosage: NI, 3 WEEKS IN, 1 WEEK OUT
     Dates: start: 20050101

REACTIONS (2)
  - ENDOMETRIOSIS [None]
  - PRECANCEROUS CELLS PRESENT [None]
